FAERS Safety Report 22663698 (Version 3)
Quarter: 2023Q4

REPORT INFORMATION
  Report Type: Report from Study
  Country: US (occurrence: US)
  Receive Date: 20230703
  Receipt Date: 20231114
  Transmission Date: 20240110
  Serious: Yes (Other)
  Sender: FDA-Public Use
  Company Number: US-ABBVIE-5310615

PATIENT
  Sex: Female

DRUGS (1)
  1. HUMIRA [Suspect]
     Active Substance: ADALIMUMAB
     Indication: Psoriatic arthropathy
     Route: 058
     Dates: start: 20230123

REACTIONS (6)
  - Exostosis [Unknown]
  - Arthralgia [Unknown]
  - Finger deformity [Unknown]
  - Pain in extremity [Unknown]
  - Foot deformity [Unknown]
  - Pain [Unknown]

NARRATIVE: CASE EVENT DATE: 20230101
